FAERS Safety Report 6923726-4 (Version None)
Quarter: 2010Q3

REPORT INFORMATION
  Report Type: 
  Country: None (occurrence: None)
  Receive Date: 20100813
  Receipt Date: 20100721
  Transmission Date: 20110219
  Serious: Yes (Other)
  Sender: FDA-Public Use
  Company Number: US-BAYER-201026375NA

PATIENT
  Age: 37 Year
  Sex: Female

DRUGS (2)
  1. BETASERON [Suspect]
     Indication: SECONDARY PROGRESSIVE MULTIPLE SCLEROSIS
     Dosage: TOTAL DAILY DOSE: 8 MIU
     Route: 058
     Dates: start: 19950210
  2. ACETAMINOPHEN [Concomitant]
     Indication: PREMEDICATION
     Dosage: 2

REACTIONS (4)
  - CHILLS [None]
  - INJECTION SITE REACTION [None]
  - MOBILITY DECREASED [None]
  - PYREXIA [None]
